FAERS Safety Report 4324714-7 (Version None)
Quarter: 2004Q1

REPORT INFORMATION
  Report Type: 
  Country: None (occurrence: None)
  Receive Date: 20040325
  Receipt Date: 20040325
  Transmission Date: 20041129
  Serious: Yes (Hospitalization)
  Sender: FDA-Public Use
  Company Number: None

PATIENT
  Age: 74 Year
  Sex: Male
  Weight: 120 kg

DRUGS (23)
  1. PIPERACILLIN [Suspect]
  2. TERAZOSIN HCL [Concomitant]
  3. ASPIRIN [Concomitant]
  4. METOPROLOL SUCCINATE [Concomitant]
  5. OMEPRAZOLE [Concomitant]
  6. DOCUSATE CA [Concomitant]
  7. DIGOXIN [Concomitant]
  8. FLUOCINONIDE [Concomitant]
  9. HYDROXYZINE [Concomitant]
  10. FLUCONAZOLE [Concomitant]
  11. OXYCODONE AND ACETAMINOPHEN [Concomitant]
  12. MAGNESIUM HYDROXIDE TAB [Concomitant]
  13. CARRINGTON MOIST BARRIER CR W/ ZINC [Concomitant]
  14. MORPHINE [Concomitant]
  15. ALBUTEROL [Concomitant]
  16. SILVER SULFADIAZINE [Concomitant]
  17. FUROSEMIDE [Concomitant]
  18. IPRATROPIUM BROMIDE [Concomitant]
  19. SPIRONOLACTONE [Concomitant]
  20. INSULIN REG HUMAN 100 U/ML INJ NOVOLIN [Concomitant]
  21. SIMVASTATIN [Concomitant]
  22. MICONAZOLE NITRATE [Concomitant]
  23. CARA KLENZ SKIN AND WOUND CLEANER [Concomitant]

REACTIONS (1)
  - RASH [None]
